FAERS Safety Report 9110287 (Version 4)
Quarter: 2014Q2

REPORT INFORMATION
  Report Type: Spontaneous
  Country: US (occurrence: US)
  Receive Date: 20130222
  Receipt Date: 20140612
  Transmission Date: 20141212
  Serious: Yes (Life-Threatening, Hospitalization)
  Sender: FDA-Public Use
  Company Number: US-BAYER-2013-019641

PATIENT
  Age: 21 Year
  Sex: Female
  Weight: 67.12 kg

DRUGS (4)
  1. MIRENA [Suspect]
     Indication: CONTRACEPTION
     Dosage: 20 MCG/24HR, CONT
     Route: 015
     Dates: start: 20080325, end: 20110324
  2. FAMOTIDINE [Concomitant]
     Dosage: 40 MG, UNK
     Route: 048
  3. ONDANSETRON [Concomitant]
     Dosage: 4 MG, UNK
     Route: 048
  4. MICROGESTIN FE [Concomitant]

REACTIONS (9)
  - Uterine perforation [None]
  - Device issue [None]
  - Pain [None]
  - Injury [None]
  - Pain [None]
  - General physical health deterioration [None]
  - Infection [None]
  - Anxiety [None]
  - Anhedonia [None]
